FAERS Safety Report 10132615 (Version 1)
Quarter: 2014Q2

REPORT INFORMATION
  Report Type: Spontaneous
  Country: US (occurrence: US)
  Receive Date: 20140428
  Receipt Date: 20140428
  Transmission Date: 20141212
  Serious: Yes (Other)
  Sender: FDA-Public Use
  Company Number: US-BAYER-2014-059547

PATIENT
  Age: 48 Year
  Sex: Female
  Weight: 88.89 kg

DRUGS (16)
  1. YAZ [Suspect]
  2. CEPHALEXIN [Concomitant]
     Indication: CELLULITIS
     Dosage: 500 MG, UNK
  3. RANITIDINE [Concomitant]
     Dosage: 150 MG, UNK
     Dates: start: 20090525
  4. SOLU-MEDROL [Concomitant]
     Indication: ASTHMA
     Dosage: 125 MG, UNK
     Route: 030
     Dates: start: 20090601
  5. ZITHROMAX [Concomitant]
     Dosage: 250 MG, UNK
  6. ALBUTEROL [Concomitant]
     Dosage: UNK
     Route: 045
     Dates: start: 20090601
  7. PROVENTIL HFA [Concomitant]
     Route: 045
  8. PREDNISONE [Concomitant]
     Dosage: 20 MG, UNK
     Dates: start: 20090601
  9. ACIPHEX [Concomitant]
     Dosage: 20 MG, UNK
  10. METOCLOPRAMIDE HCL [Concomitant]
     Dosage: 10 MG, UNK
  11. ACYCLOVIR [ACICLOVIR] [Concomitant]
     Dosage: 400 MG, UNK
  12. ATROVENT [Concomitant]
  13. CLOBETASOL PROPIONATE [Concomitant]
     Dosage: 0.05 %, UNK
  14. ELMIRON [Concomitant]
     Dosage: 100 MG, UNK
  15. HYDROCORTISONE ACETATE [Concomitant]
     Dosage: 25 MG, UNK
     Route: 054
  16. TRAMADOL [Concomitant]

REACTIONS (1)
  - Deep vein thrombosis [Recovered/Resolved]
